FAERS Safety Report 4632961-X (Version None)
Quarter: 2005Q2

REPORT INFORMATION
  Report Type: 
  Country: None (occurrence: None)
  Receive Date: 20050412
  Receipt Date: 20050324
  Transmission Date: 20051028
  Serious: Yes (Hospitalization)
  Sender: FDA-Public Use
  Company Number: CH-ROCHE-401474

PATIENT
  Sex: Male

DRUGS (1)
  1. TOREM [Suspect]
     Indication: FLUID RETENTION
     Route: 048
     Dates: start: 20030715, end: 20040715

REACTIONS (3)
  - ANAEMIA [None]
  - ASTHENIA [None]
  - VISUAL FIELD DEFECT [None]
